FAERS Safety Report 8431569-8 (Version None)
Quarter: 2012Q2

REPORT INFORMATION
  Report Type: 
  Country: None (occurrence: None)
  Receive Date: 20120607
  Receipt Date: 20120607
  Transmission Date: 20120825
  Serious: No
  Sender: FDA-Public Use
  Company Number: None

PATIENT
  Sex: Female
  Weight: 132.4503 kg

DRUGS (1)
  1. RECLAST [Suspect]
     Indication: VITAMIN D DEFICIENCY
     Dosage: X1 I.V.
     Route: 042
     Dates: start: 20111123

REACTIONS (4)
  - ARTHROPATHY [None]
  - INFLUENZA LIKE ILLNESS [None]
  - ABASIA [None]
  - HEADACHE [None]
